FAERS Safety Report 8962418 (Version 1)
Quarter: 2012Q4

REPORT INFORMATION
  Report Type: 
  Country: DE (occurrence: FR)
  Receive Date: 20121213
  Receipt Date: 20121213
  Transmission Date: 20130627
  Serious: Yes (Life-Threatening)
  Sender: FDA-Public Use
  Company Number: FR-BRISTOL-MYERS SQUIBB COMPANY-17192832

PATIENT
  Age: 67 Year
  Sex: Female

DRUGS (10)
  1. GLUCOPHAGE [Suspect]
     Route: 048
     Dates: start: 20121007
  2. RENITEC [Suspect]
     Route: 048
     Dates: start: 20121007
  3. LASILIX [Suspect]
     Route: 048
     Dates: start: 20121007
  4. VOLTARENE [Suspect]
     Route: 048
     Dates: start: 20121007
  5. AUGMENTIN [Concomitant]
     Route: 048
  6. AMLODIPINE [Concomitant]
     Route: 048
     Dates: start: 20121019
  7. KARDEGIC [Concomitant]
     Route: 048
  8. CLOPIDOGREL BISULFATE [Concomitant]
     Route: 048
     Dates: start: 20121019, end: 20121019
  9. PRAVASTATINE [Concomitant]
     Route: 048
     Dates: start: 20121007
  10. OMEPRAZOLE [Concomitant]
     Route: 048

REACTIONS (2)
  - Renal failure acute [Recovered/Resolved]
  - Acidosis [Recovered/Resolved]
